FAERS Safety Report 5631566-1 (Version None)
Quarter: 2008Q1

REPORT INFORMATION
  Report Type: 
  Country: None (occurrence: None)
  Receive Date: 20080212
  Receipt Date: 20080130
  Transmission Date: 20080703
  Serious: Yes (Hospitalization)
  Sender: FDA-Public Use
  Company Number: 08US001009

PATIENT
  Age: 42 Year
  Sex: Male

DRUGS (1)
  1. LITHIUM CARBONATE [Suspect]
     Indication: AGGRESSION
     Dosage: 300 MG, TID

REACTIONS (1)
  - BRUGADA SYNDROME [None]
